FAERS Safety Report 5193770-9 (Version None)
Quarter: 2006Q4

REPORT INFORMATION
  Report Type: 
  Country: None (occurrence: None)
  Receive Date: 20061228
  Receipt Date: 20061207
  Transmission Date: 20070319
  Serious: Yes (Hospitalization)
  Sender: FDA-Public Use
  Company Number: 2006024243

PATIENT
  Age: 84 Year
  Sex: Male
  Weight: 75 kg

DRUGS (1)
  1. QUILONUM RETARD [Suspect]
     Route: 048
     Dates: end: 20061207

REACTIONS (5)
  - CONVULSION [None]
  - HAEMODIALYSIS [None]
  - MYOCLONUS [None]
  - RENAL FAILURE [None]
  - RESTLESSNESS [None]
